FAERS Safety Report 5003705-7 (Version None)
Quarter: 2006Q2

REPORT INFORMATION
  Report Type: 
  Country: None (occurrence: None)
  Receive Date: 20060515
  Receipt Date: 20060501
  Transmission Date: 20061013
  Serious: Yes (Congenital Anomaly, Other)
  Sender: FDA-Public Use
  Company Number: L06-TUR-01600-02

PATIENT
  Sex: Male

DRUGS (2)
  1. CARBAMAZEPINE [Suspect]
     Indication: EPILEPSY
  2. VALPROATE SODIUM [Suspect]
     Indication: EPILEPSY

REACTIONS (12)
  - BODY HEIGHT BELOW NORMAL [None]
  - CAESAREAN SECTION [None]
  - CONGENITAL OSTEODYSTROPHY [None]
  - DRUG EXPOSURE DURING PREGNANCY [None]
  - FACIAL DYSMORPHISM [None]
  - FOETAL VALPROATE SYNDROME [None]
  - HYPERTELORISM OF ORBIT [None]
  - LIMB MALFORMATION [None]
  - LIMB REDUCTION DEFECT [None]
  - MICROGNATHIA [None]
  - NAIL DISORDER [None]
  - NEURODEVELOPMENTAL DISORDER [None]
